FAERS Safety Report 25524089 (Version 1)
Quarter: 2025Q3

REPORT INFORMATION
  Report Type: Spontaneous
  Country: IN (occurrence: IN)
  Receive Date: 20250707
  Receipt Date: 20250707
  Transmission Date: 20251020
  Serious: Yes (Other)
  Sender: MYLAN
  Company Number: IN-MYLANLABS-2025M1055601

PATIENT
  Age: 26 Year
  Sex: Female

DRUGS (10)
  1. ETOPOSIDE [Suspect]
     Active Substance: ETOPOSIDE
     Indication: Gestational trophoblastic tumour
  2. ETOPOSIDE [Suspect]
     Active Substance: ETOPOSIDE
  3. METHOTREXATE [Suspect]
     Active Substance: METHOTREXATE
     Indication: Gestational trophoblastic tumour
  4. METHOTREXATE [Suspect]
     Active Substance: METHOTREXATE
  5. DACTINOMYCIN [Suspect]
     Active Substance: DACTINOMYCIN
     Indication: Gestational trophoblastic tumour
  6. DACTINOMYCIN [Suspect]
     Active Substance: DACTINOMYCIN
  7. CYCLOPHOSPHAMIDE [Suspect]
     Active Substance: CYCLOPHOSPHAMIDE
     Indication: Gestational trophoblastic tumour
  8. CYCLOPHOSPHAMIDE [Suspect]
     Active Substance: CYCLOPHOSPHAMIDE
  9. VINCRISTINE [Suspect]
     Active Substance: VINCRISTINE
     Indication: Gestational trophoblastic tumour
  10. VINCRISTINE [Suspect]
     Active Substance: VINCRISTINE

REACTIONS (2)
  - Full blood count abnormal [Recovering/Resolving]
  - Off label use [Unknown]
